FAERS Safety Report 21473214 (Version 1)
Quarter: 2022Q4

REPORT INFORMATION
  Report Type: Spontaneous
  Country: SE (occurrence: None)
  Receive Date: 20221018
  Receipt Date: 20221018
  Transmission Date: 20230112
  Serious: Yes (Life-Threatening)
  Sender: FDA-Public Use
  Company Number: SE-ROCHE-3201390

PATIENT
  Sex: Female

DRUGS (1)
  1. CLONAZEPAM [Suspect]
     Active Substance: CLONAZEPAM
     Indication: Anxiety
     Dosage: SLOW TAPERING OF MEDICATION HAS BEEN DONE 2-3 TIMES BEFORE.
     Route: 065

REACTIONS (3)
  - Suicidal ideation [Unknown]
  - Feeling abnormal [Unknown]
  - Drug dependence [Not Recovered/Not Resolved]
